FAERS Safety Report 16746585 (Version 1)
Quarter: 2019Q3

REPORT INFORMATION
  Report Type: Spontaneous
  Country: FR (occurrence: FR)
  Receive Date: 20190827
  Receipt Date: 20190827
  Transmission Date: 20191005
  Serious: Yes (Hospitalization)
  Sender: FDA-Public Use
  Company Number: FR-MYLANLABS-2019M1079743

PATIENT
  Age: 79 Year
  Sex: Female
  Weight: 49 kg

DRUGS (5)
  1. LETROZOLE. [Suspect]
     Active Substance: LETROZOLE
     Indication: BREAST CANCER
     Dosage: 2.5 MILLIGRAM, QD
     Route: 048
     Dates: start: 20181113
  2. LEVOTHYROX [Suspect]
     Active Substance: LEVOTHYROXINE
     Indication: THYROIDECTOMY
     Dosage: 87.5 MILLIGRAM, QD
     Route: 048
  3. CALCIFORTE /08576401/ [Suspect]
     Active Substance: CALCIUM\SACCHAROMYCES CEREVISIAE
     Indication: MINERAL SUPPLEMENTATION
     Dosage: 1000 MILLIGRAM, QD
     Route: 048
  4. ALFACALCIDOL [Suspect]
     Active Substance: ALFACALCIDOL
     Indication: VITAMIN SUPPLEMENTATION
     Dosage: 0.5 MILLIGRAM, QD
     Route: 048
  5. HERCEPTIN [Suspect]
     Active Substance: TRASTUZUMAB
     Indication: BREAST CANCER
     Dosage: 1 DOSAGE FORM, 3XW
     Route: 058
     Dates: start: 20190213, end: 20190213

REACTIONS (1)
  - Cerebral haemorrhage [Recovering/Resolving]

NARRATIVE: CASE EVENT DATE: 20190225
